FAERS Safety Report 6431707-2 (Version None)
Quarter: 2009Q4

REPORT INFORMATION
  Report Type: 
  Country: None (occurrence: None)
  Receive Date: 20091103
  Receipt Date: 20091019
  Transmission Date: 20100525
  Serious: Yes (Hospitalization)
  Sender: FDA-Public Use
  Company Number: 02100-JPN-05-0223

PATIENT
  Age: 45 Year
  Sex: Male
  Weight: 71.1 kg

DRUGS (2)
  1. PLETAL [Suspect]
     Indication: CEREBRAL INFARCTION
     Dosage: 100 MG, BID
     Route: 048
     Dates: start: 20040811, end: 20050514
  2. PLETAL [Suspect]
     Indication: CEREBRAL INFARCTION
     Dosage: 100 MG, BID
     Route: 048
     Dates: start: 20050521, end: 20050913

REACTIONS (13)
  - ASTIGMATISM [None]
  - BRAIN OEDEMA [None]
  - CEREBELLAR INFARCTION [None]
  - CEREBRAL INFARCTION [None]
  - CONVULSION [None]
  - DIZZINESS [None]
  - HAEMANGIOMA [None]
  - HAEMORRHAGIC INFARCTION [None]
  - PSEUDOMONAS INFECTION [None]
  - RASH [None]
  - SEPSIS [None]
  - SUDDEN HEARING LOSS [None]
  - VASCULITIS [None]
